FAERS Safety Report 16089450 (Version 1)
Quarter: 2019Q1

REPORT INFORMATION
  Report Type: Spontaneous
  Country: FR (occurrence: FR)
  Receive Date: 20190319
  Receipt Date: 20190319
  Transmission Date: 20190418
  Serious: Yes (Hospitalization)
  Sender: FDA-Public Use
  Company Number: FR-ELI_LILLY_AND_COMPANY-FR201903008258

PATIENT
  Age: 33 Year
  Sex: Female

DRUGS (3)
  1. CYMBALTA [Suspect]
     Active Substance: DULOXETINE HYDROCHLORIDE
     Indication: PRODUCT USED FOR UNKNOWN INDICATION
     Dosage: UNK UNK, UNKNOWN
     Route: 048
  2. LYSANXIA [Suspect]
     Active Substance: PRAZEPAM
     Indication: ANXIETY
     Dosage: UNK, UNKNOWN
     Route: 048
  3. IMOVANE [Suspect]
     Active Substance: ZOPICLONE
     Indication: PANIC ATTACK
     Dosage: UNK, UNKNOWN
     Route: 048
     Dates: start: 20190212, end: 20190213

REACTIONS (2)
  - Hypotonia [Recovered/Resolved]
  - Intentional overdose [Recovered/Resolved]

NARRATIVE: CASE EVENT DATE: 20190212
